FAERS Safety Report 5614324-3 (Version None)
Quarter: 2008Q1

REPORT INFORMATION
  Report Type: 
  Country: None (occurrence: None)
  Receive Date: 20080130
  Receipt Date: 20070220
  Transmission Date: 20080703
  Serious: No
  Sender: FDA-Public Use
  Company Number: NL01PV07.02182

PATIENT
  Sex: Male

DRUGS (4)
  1. PAROXETINE [Suspect]
     Dosage: 20 MG QD ; 40 MG QD
     Dates: start: 20011111, end: 20020129
  2. PAROXETINE [Suspect]
     Dosage: 20 MG QD ; 40 MG QD
     Dates: start: 20020129
  3. LANSOPRAZOLE [Concomitant]
  4. SERTRALINE [Concomitant]

REACTIONS (8)
  - AGGRESSION [None]
  - ALCOHOLIC [None]
  - ANXIETY [None]
  - COMPLETED SUICIDE [None]
  - DEPRESSED MOOD [None]
  - DRUG HYPERSENSITIVITY [None]
  - DRUG WITHDRAWAL SYNDROME [None]
  - PANIC ATTACK [None]
